FAERS Safety Report 22015606 (Version 3)
Quarter: 2023Q1

REPORT INFORMATION
  Report Type: Spontaneous
  Country: US (occurrence: US)
  Receive Date: 20230221
  Receipt Date: 20230308
  Transmission Date: 20230417
  Serious: Yes (Other)
  Sender: FDA-Public Use
  Company Number: US-SA-SAC20230220001670

PATIENT
  Sex: Female

DRUGS (6)
  1. DUPIXENT [Suspect]
     Active Substance: DUPILUMAB
     Indication: Dermatitis atopic
     Dosage: 300 MG, QOW
     Route: 058
  2. CEVIMELINE [Concomitant]
     Active Substance: CEVIMELINE
  3. DULOXETINE [Concomitant]
     Active Substance: DULOXETINE
  4. OXYBUTYNIN [Concomitant]
     Active Substance: OXYBUTYNIN
  5. PANTOPRAZOLE [Concomitant]
     Active Substance: PANTOPRAZOLE
  6. HYDROXYCHLOROQUINE [Concomitant]
     Active Substance: HYDROXYCHLOROQUINE
     Dosage: UNK

REACTIONS (7)
  - Macular degeneration [Unknown]
  - Dry skin [Unknown]
  - Skin exfoliation [Unknown]
  - Erythema [Unknown]
  - Pruritus [Unknown]
  - Dermatitis atopic [Unknown]
  - Inappropriate schedule of product administration [Unknown]
